FAERS Safety Report 24547490 (Version 3)
Quarter: 2024Q4

REPORT INFORMATION
  Report Type: Spontaneous
  Country: BE (occurrence: BE)
  Receive Date: 20241025
  Receipt Date: 20241211
  Transmission Date: 20250115
  Serious: Yes (Hospitalization, Other)
  Sender: Haleon PLC
  Company Number: BE-002147023-NVSC2024BE205491

PATIENT
  Age: 49 Year
  Sex: Female

DRUGS (4)
  1. TERBINAFINE [Suspect]
     Active Substance: TERBINAFINE\TERBINAFINE HYDROCHLORIDE
     Indication: Onychomycosis
     Dosage: UNK
     Route: 065
  2. TIBOLONE [Concomitant]
     Active Substance: TIBOLONE
     Indication: Product used for unknown indication
  3. ASPIRIN [Concomitant]
     Active Substance: ASPIRIN
     Indication: Product used for unknown indication
  4. MONTELUKAST [Concomitant]
     Active Substance: MONTELUKAST
     Indication: Product used for unknown indication

REACTIONS (9)
  - Parotitis [Recovering/Resolving]
  - C-reactive protein increased [Unknown]
  - Pericarditis [Recovering/Resolving]
  - Agranulocytosis [Recovering/Resolving]
  - Chest pain [Recovering/Resolving]
  - Parotid gland enlargement [Recovering/Resolving]
  - Oropharyngeal pain [Recovering/Resolving]
  - Cough [Recovering/Resolving]
  - Pyrexia [Recovering/Resolving]
